FAERS Safety Report 16623077 (Version 1)
Quarter: 2019Q3

REPORT INFORMATION
  Report Type: Spontaneous
  Country: AU (occurrence: AU)
  Receive Date: 20190723
  Receipt Date: 20190723
  Transmission Date: 20191004
  Serious: Yes (Other)
  Sender: FDA-Public Use
  Company Number: AU-GLAXOSMITHKLINE-AU2019APC130154

PATIENT

DRUGS (1)
  1. DUODART [Suspect]
     Active Substance: DUTASTERIDE\TAMSULOSIN
     Indication: TYPE 2 DIABETES MELLITUS
     Dosage: UNK
     Dates: end: 20190701

REACTIONS (2)
  - Sexual dysfunction [Unknown]
  - Mental impairment [Unknown]

NARRATIVE: CASE EVENT DATE: 20190701
